FAERS Safety Report 21852677 (Version 5)
Quarter: 2023Q1

REPORT INFORMATION
  Report Type: Report from Study
  Country: ES (occurrence: ES)
  Receive Date: 20230112
  Receipt Date: 20230131
  Transmission Date: 20230417
  Serious: Yes (Hospitalization, Other)
  Sender: FDA-Public Use
  Company Number: ES-ABBVIE-4267011

PATIENT
  Age: 77 Year
  Sex: Female

DRUGS (3)
  1. CARBIDOPA\LEVODOPA [Suspect]
     Active Substance: CARBIDOPA\LEVODOPA
     Indication: Parkinson^s disease
     Dosage: 14 ML MORNING DOSE, CONTINUOUS DOSE 2.2 ML/H
     Route: 050
     Dates: start: 20160411, end: 202301
  2. CARBIDOPA\LEVODOPA [Suspect]
     Active Substance: CARBIDOPA\LEVODOPA
     Dosage: ADJUSTED THE CONTINUOUS DOSE TO 2 ML/H.
     Route: 050
     Dates: start: 202301
  3. QUETIAPINE [Concomitant]
     Active Substance: QUETIAPINE
     Indication: Product used for unknown indication
     Route: 065
     Dates: start: 20230110

REACTIONS (7)
  - Ulcer [Recovered/Resolved]
  - Pyrexia [Recovered/Resolved]
  - Dysphagia [Not Recovered/Not Resolved]
  - Pain [Recovered/Resolved]
  - Hypophagia [Not Recovered/Not Resolved]
  - Localised infection [Recovering/Resolving]
  - Enteral nutrition [Not Recovered/Not Resolved]

NARRATIVE: CASE EVENT DATE: 20230105
